FAERS Safety Report 25039391 (Version 1)
Quarter: 2025Q1

REPORT INFORMATION
  Report Type: Spontaneous
  Country: US (occurrence: US)
  Receive Date: 20250305
  Receipt Date: 20250305
  Transmission Date: 20250409
  Serious: No
  Sender: WAYLIS THERAPEUTICS LLC
  Company Number: US-WT-2025-0110

PATIENT
  Sex: Female

DRUGS (1)
  1. LUNESTA [Suspect]
     Active Substance: ESZOPICLONE
     Indication: Insomnia
     Route: 065

REACTIONS (3)
  - Rosacea [Unknown]
  - Rash [Unknown]
  - Allergic reaction to excipient [Unknown]
